FAERS Safety Report 22333228 (Version 8)
Quarter: 2023Q4

REPORT INFORMATION
  Report Type: Spontaneous
  Country: JP (occurrence: None)
  Receive Date: 20230517
  Receipt Date: 20231031
  Transmission Date: 20240109
  Serious: Yes (Life-Threatening, Hospitalization, Other)
  Sender: FDA-Public Use
  Company Number: 2023A110539

PATIENT
  Age: 23563 Day
  Sex: Male
  Weight: 66 kg

DRUGS (14)
  1. IMFINZI [Suspect]
     Active Substance: DURVALUMAB
     Indication: Small cell lung cancer
     Route: 041
     Dates: start: 20220526, end: 20220802
  2. IMFINZI [Suspect]
     Active Substance: DURVALUMAB
     Indication: Small cell lung cancer
     Route: 041
     Dates: start: 20220824, end: 20230405
  3. ETOPOSIDE [Concomitant]
     Active Substance: ETOPOSIDE
     Indication: Small cell lung cancer
     Dosage: ON DAY 1, DAY 2, AND DAY 3 OF EACH COURSE, 12 TIMES
     Dates: start: 20220526, end: 20220804
  4. CISPLATIN [Concomitant]
     Active Substance: CISPLATIN
     Indication: Small cell lung cancer
     Dates: start: 20220526, end: 20220526
  5. CISPLATIN [Concomitant]
     Active Substance: CISPLATIN
     Indication: Small cell lung cancer
     Dates: start: 20220621, end: 20220802
  6. FLUTICASONE PROPIONATE\SALMETEROL XINAFOATE [Concomitant]
     Active Substance: FLUTICASONE PROPIONATE\SALMETEROL XINAFOATE
     Indication: Asthma
     Route: 055
  7. FLUTICASONE FUROATE\VILANTEROL TRIFENATATE [Concomitant]
     Active Substance: FLUTICASONE FUROATE\VILANTEROL TRIFENATATE
     Indication: Asthma
     Route: 055
  8. VONOPRAZAN FUMARATE [Concomitant]
     Active Substance: VONOPRAZAN FUMARATE
     Route: 048
     Dates: start: 20220526
  9. LOXOPROFEN [Concomitant]
     Active Substance: LOXOPROFEN
     Indication: Chest pain
     Dosage: WHEN IN PAIN
     Route: 048
     Dates: start: 20220526, end: 20220713
  10. HYDROMORPHONE HYDROCHLORIDE [Concomitant]
     Active Substance: HYDROMORPHONE HYDROCHLORIDE
     Indication: Chest pain
     Route: 048
     Dates: start: 20220531, end: 20230301
  11. HYDROMORPHONE HYDROCHLORIDE [Concomitant]
     Active Substance: HYDROMORPHONE HYDROCHLORIDE
     Indication: Chest pain
     Dosage: WHEN IN PAIN
     Route: 048
     Dates: start: 20220531, end: 20221019
  12. FEXOFENADINE HYDROCHLORIDE [Concomitant]
     Active Substance: FEXOFENADINE HYDROCHLORIDE
     Indication: Urticaria
     Route: 048
     Dates: start: 20220524, end: 20220528
  13. PROCATEROL HYDROCHLORIDE [Concomitant]
     Active Substance: PROCATEROL HYDROCHLORIDE
     Indication: Asthma
     Dosage: AS REQUIRED
  14. AMLODIPINE [Concomitant]
     Active Substance: AMLODIPINE BESYLATE
     Indication: Asthma
     Dosage: AS REQUIRED
     Route: 048
     Dates: start: 20230111, end: 20230507

REACTIONS (24)
  - Acute kidney injury [Recovering/Resolving]
  - Parotitis [Recovering/Resolving]
  - Sialoadenitis [Recovering/Resolving]
  - Adrenocorticotropic hormone deficiency [Recovered/Resolved with Sequelae]
  - Movement disorder [Recovered/Resolved with Sequelae]
  - Malaise [Recovered/Resolved with Sequelae]
  - Tachycardia [Recovered/Resolved with Sequelae]
  - Thyroid mass [Recovering/Resolving]
  - Inflammation [Recovering/Resolving]
  - Thyroiditis [Recovered/Resolved with Sequelae]
  - Adrenal insufficiency [Recovered/Resolved with Sequelae]
  - Pancreatitis acute [Recovered/Resolved]
  - Autoimmune thyroiditis [Recovered/Resolved with Sequelae]
  - Pyrexia [Recovered/Resolved with Sequelae]
  - Tumour marker increased [Unknown]
  - Hepatic function abnormal [Recovered/Resolved]
  - Sialoadenitis [Unknown]
  - Cellulitis [Recovered/Resolved]
  - Bone contusion [Unknown]
  - Bone marrow oedema [Unknown]
  - Hypertension [Unknown]
  - Hypothyroidism [Unknown]
  - Hyperthyroidism [Unknown]
  - Hepatic enzyme increased [Recovered/Resolved]

NARRATIVE: CASE EVENT DATE: 20230111
